FAERS Safety Report 23437691 (Version 1)
Quarter: 2024Q1

REPORT INFORMATION
  Report Type: Spontaneous
  Country: US (occurrence: None)
  Receive Date: 20240123
  Receipt Date: 20240123
  Transmission Date: 20240409
  Serious: Yes (Other)
  Sender: FDA-Public Use
  Company Number: None

PATIENT
  Sex: Female

DRUGS (25)
  1. HUMIRA [Suspect]
     Active Substance: ADALIMUMAB
     Indication: Psoriatic arthropathy
  2. ALLERGY RLFT TAB 180MG [Concomitant]
  3. ATORVASTATIN TAB 10MG [Concomitant]
  4. ATORVASTATIN TAB 20MG [Concomitant]
  5. ATORVASTATIN TAB 40MG [Concomitant]
  6. BETAMETH DIP CRE 0.05% [Concomitant]
  7. CELEXOXIB CAP 100MG [Concomitant]
  8. CELECOXIB CAP 200MG [Concomitant]
  9. D3-1000 CAP 1000UNIT [Concomitant]
  10. DICLOFENAC [Concomitant]
     Active Substance: DICLOFENAC
  11. DULOXETINE CAP 30MG [Concomitant]
  12. FERROUS SULF TAB 325MG [Concomitant]
  13. FEXOFENADINE TAB 180MG [Concomitant]
  14. FLUTICASONE [Concomitant]
     Active Substance: FLUTICASONE
  15. GABAPENTIN CAP 100MG [Concomitant]
  16. KETOTIF FUM DRO 0.035%OP [Concomitant]
  17. LISINOPIRL TAB 10MG [Concomitant]
  18. LISINOPIRL TAB 20MG [Concomitant]
  19. MAGNESIUM TAB 500MG [Concomitant]
  20. ONDANSETRON TAB 4MG ODT [Concomitant]
  21. OTEZLA TAB 30MG [Concomitant]
  22. SULFASALAZIN TAB 500MG [Concomitant]
  23. TRIAMCINOLON CRE 0.1% [Concomitant]
  24. TRIAMCINOLON OIN 0.1% [Concomitant]
  25. ZTLIDO PAD 1.8% [Concomitant]

REACTIONS (2)
  - Surgery [None]
  - Therapy interrupted [None]
